FAERS Safety Report 4690046-0 (Version None)
Quarter: 2005Q2

REPORT INFORMATION
  Report Type: 
  Country: None (occurrence: None)
  Receive Date: 20050614
  Receipt Date: 20050531
  Transmission Date: 20051028
  Serious: Yes (Life-Threatening)
  Sender: FDA-Public Use
  Company Number: 2005082714

PATIENT
  Age: 62 Year
  Sex: Male

DRUGS (2)
  1. IRINOTECAN HCL [Suspect]
     Indication: SMALL CELL LUNG CANCER STAGE UNSPECIFIED
     Dosage: 100 MG, INTRAVENOUS
     Route: 042
     Dates: start: 20050425, end: 20050425
  2. CISPLATIN [Suspect]
     Indication: SMALL CELL LUNG CANCER STAGE UNSPECIFIED
     Dosage: 100 MG, INTRAVENOUS
     Route: 042
     Dates: start: 20050425, end: 20050425

REACTIONS (1)
  - INTERSTITIAL LUNG DISEASE [None]
